FAERS Safety Report 5267627-9 (Version None)
Quarter: 2007Q1

REPORT INFORMATION
  Report Type: 
  Country: None (occurrence: None)
  Receive Date: 20070316
  Receipt Date: 20070306
  Transmission Date: 20070707
  Serious: Yes (Hospitalization)
  Sender: FDA-Public Use
  Company Number: US-GILEAD-2007-0011543

PATIENT

DRUGS (1)
  1. TRUVADA [Suspect]
     Indication: ANTIVIRAL PROPHYLAXIS
     Route: 064

REACTIONS (1)
  - TACHYPNOEA [None]
